FAERS Safety Report 9778818 (Version 1)
Quarter: 2013Q4

REPORT INFORMATION
  Report Type: Spontaneous
  Country: IT (occurrence: IT)
  Receive Date: 20131223
  Receipt Date: 20131223
  Transmission Date: 20140711
  Serious: Yes (Other)
  Sender: FDA-Public Use
  Company Number: IT-ELI_LILLY_AND_COMPANY-IT201312004643

PATIENT
  Age: 74 Year
  Sex: Male
  Weight: 75 kg

DRUGS (1)
  1. ALIMTA [Suspect]
     Indication: LUNG ADENOCARCINOMA STAGE IV
     Dosage: 935 MG, CYCLICAL
     Route: 042
     Dates: start: 20131015, end: 20131019

REACTIONS (3)
  - Pancytopenia [Recovered/Resolved]
  - Febrile neutropenia [Recovered/Resolved]
  - Haemoptysis [Recovered/Resolved]
